FAERS Safety Report 17151238 (Version 3)
Quarter: 2020Q2

REPORT INFORMATION
  Report Type: Spontaneous
  Country: US (occurrence: US)
  Receive Date: 20191213
  Receipt Date: 20200430
  Transmission Date: 20200713
  Serious: No
  Sender: FDA-Public Use
  Company Number: US-PFIZER INC-2019537022

PATIENT
  Age: 47 Year
  Sex: Male

DRUGS (1)
  1. METHOTREXATE SODIUM. [Suspect]
     Active Substance: METHOTREXATE SODIUM
     Dosage: UNK
     Dates: start: 2018, end: 2019

REACTIONS (4)
  - Stomatitis [Unknown]
  - Drug intolerance [Unknown]
  - Arthralgia [Unknown]
  - Drug ineffective [Unknown]
